FAERS Safety Report 23362087 (Version 2)
Quarter: 2024Q4

REPORT INFORMATION
  Report Type: Spontaneous
  Country: US (occurrence: US)
  Receive Date: 20240103
  Receipt Date: 20241210
  Transmission Date: 20250114
  Serious: No
  Sender: PFIZER
  Company Number: US-PFIZER INC-PV202300198984

PATIENT
  Age: 60 Year
  Sex: Female
  Weight: 48.48 kg

DRUGS (1)
  1. LORBRENA [Suspect]
     Active Substance: LORLATINIB
     Dosage: TAKE 3 TABLETS (75 MG TOTAL) BY MOUTH DAILY
     Route: 048

REACTIONS (1)
  - Anxiety [Unknown]
